FAERS Safety Report 4862866-0 (Version None)
Quarter: 2005Q4

REPORT INFORMATION
  Report Type: 
  Country: None (occurrence: None)
  Receive Date: 20051221
  Receipt Date: 20050915
  Transmission Date: 20060501
  Serious: Yes (Death, Hospitalization, Other)
  Sender: FDA-Public Use
  Company Number: JP-BRISTOL-MYERS SQUIBB COMPANY-13111398

PATIENT
  Age: 61 Year
  Sex: Male

DRUGS (13)
  1. TAXOL [Suspect]
     Indication: LUNG NEOPLASM MALIGNANT
     Route: 042
     Dates: start: 20050817, end: 20050817
  2. PARAPLATIN [Suspect]
     Indication: LUNG NEOPLASM MALIGNANT
     Route: 042
     Dates: start: 20050817, end: 20050817
  3. DECADRON [Concomitant]
     Route: 042
  4. ZANTAC [Concomitant]
     Route: 042
  5. RESTAMIN [Concomitant]
     Route: 048
  6. PARIET [Concomitant]
     Route: 048
     Dates: start: 20050818, end: 20050909
  7. OXYCONTIN [Concomitant]
     Route: 048
     Dates: start: 20050715, end: 20050909
  8. OPSO [Concomitant]
     Route: 048
     Dates: start: 20050715, end: 20050909
  9. LOXONIN [Concomitant]
     Route: 048
     Dates: start: 20050712, end: 20050909
  10. MUCOSTA [Concomitant]
     Route: 048
     Dates: start: 20050712, end: 20050818
  11. MAGNESIUM OXIDE [Concomitant]
     Route: 048
     Dates: start: 20050715, end: 20050909
  12. NOVAMIN [Concomitant]
     Route: 048
     Dates: start: 20050715, end: 20050719
  13. VOLTAREN [Concomitant]
     Route: 054
     Dates: start: 20050712, end: 20050909

REACTIONS (2)
  - MALIGNANT NEOPLASM PROGRESSION [None]
  - PULMONARY FIBROSIS [None]
